FAERS Safety Report 6895059-6 (Version None)
Quarter: 2010Q3

REPORT INFORMATION
  Report Type: 
  Country: None (occurrence: None)
  Receive Date: 20100730
  Receipt Date: 20100730
  Transmission Date: 20110219
  Serious: Yes (Hospitalization)
  Sender: FDA-Public Use
  Company Number: None

PATIENT
  Age: 60 Year
  Sex: Male
  Weight: 103.9 kg

DRUGS (1)
  1. NAPROXEN [Suspect]
     Dosage: 440 MG ONCE PO
     Route: 048
     Dates: start: 20100728, end: 20100729

REACTIONS (3)
  - ASTHMA [None]
  - BLOOD PH DECREASED [None]
  - RESPIRATORY DISTRESS [None]
